FAERS Safety Report 6729765-0 (Version None)
Quarter: 2010Q2

REPORT INFORMATION
  Report Type: 
  Country: None (occurrence: None)
  Receive Date: 20100518
  Receipt Date: 20100504
  Transmission Date: 20101027
  Serious: Yes (Hospitalization)
  Sender: FDA-Public Use
  Company Number: US-BAYER-201019361NA

PATIENT
  Age: 34 Year
  Sex: Female
  Weight: 86 kg

DRUGS (12)
  1. CAMPATH [Suspect]
     Indication: MULTIPLE SCLEROSIS
     Dosage: TOTAL DAILY DOSE: 12 MG
     Route: 042
     Dates: start: 20080512, end: 20080516
  2. CAMPATH [Suspect]
     Dosage: TOTAL DAILY DOSE: 12 MG
     Route: 042
     Dates: start: 20090817, end: 20090819
  3. METHYLPREDNISOLONE 4MG TAB [Concomitant]
     Dates: start: 20080512, end: 20080514
  4. METHYLPREDNISOLONE 4MG TAB [Concomitant]
     Dates: start: 20090817, end: 20090819
  5. ZOFRAN [Concomitant]
     Dates: start: 20090812
  6. ADVIL [Concomitant]
     Dates: start: 20090817
  7. NUVIGIL [Concomitant]
     Dates: start: 20091116
  8. VALTREX [Concomitant]
     Dates: start: 20091108
  9. METOPROLOL TARTRATE [Concomitant]
     Dosage: APPROXIMATELY 200 MG
  10. PROPYLTHIOURACIL [Concomitant]
  11. PROPYLTHIOURACIL [Concomitant]
     Dosage: TOTAL DAILY DOSE: 200 MG
  12. PROPYLTHIOURACIL [Concomitant]
     Dosage: TOTAL DAILY DOSE: 600 MG

REACTIONS (10)
  - ANTI-THYROID ANTIBODY POSITIVE [None]
  - CAESAREAN SECTION [None]
  - DRUG EXPOSURE BEFORE PREGNANCY [None]
  - HERPES SIMPLEX [None]
  - HYPERTHYROIDISM [None]
  - NEUTROPENIA [None]
  - PARATHYROID GLAND ENLARGEMENT [None]
  - PREGNANCY [None]
  - PREGNANCY INDUCED HYPERTENSION [None]
  - THYROTOXIC CRISIS [None]
